FAERS Safety Report 9388874 (Version 5)
Quarter: 2013Q3

REPORT INFORMATION
  Report Type: Report from Study
  Country: US (occurrence: US)
  Receive Date: 20130708
  Receipt Date: 20130827
  Transmission Date: 20140515
  Serious: Yes (Hospitalization, Other)
  Sender: FDA-Public Use
  Company Number: US-ABBOTT-13P-163-1100661-00

PATIENT
  Age: 54 Year
  Sex: Female

DRUGS (6)
  1. HUMIRA [Suspect]
     Indication: PSORIASIS
     Dates: start: 20130529, end: 20130529
  2. HUMIRA [Suspect]
     Dates: start: 20130611
  3. HUMIRA [Suspect]
     Dates: start: 20130710
  4. PREDNISONE [Suspect]
     Indication: PRODUCT USED FOR UNKNOWN INDICATION
  5. BONIVA [Concomitant]
     Indication: OSTEOPOROSIS
  6. VAGIFEM [Concomitant]
     Indication: VULVOVAGINAL DRYNESS

REACTIONS (18)
  - Chest pain [Unknown]
  - Pyrexia [Not Recovered/Not Resolved]
  - Oropharyngeal pain [Not Recovered/Not Resolved]
  - Streptococcal infection [Unknown]
  - Pruritus [Unknown]
  - Rash macular [Unknown]
  - Burning sensation [Recovered/Resolved]
  - Rash papular [Recovering/Resolving]
  - Burning sensation [Unknown]
  - Feeling abnormal [Unknown]
  - Insomnia [Unknown]
  - Constipation [Unknown]
  - Feeling abnormal [Unknown]
  - Guttate psoriasis [Unknown]
  - Injection site pain [Unknown]
  - Incorrect dose administered [Unknown]
  - Wrong technique in drug usage process [Unknown]
  - Drug dose omission [Unknown]
